FAERS Safety Report 13810965 (Version 1)
Quarter: 2017Q3

REPORT INFORMATION
  Report Type: Spontaneous
  Country: US (occurrence: US)
  Receive Date: 20170728
  Receipt Date: 20170728
  Transmission Date: 20171127
  Serious: No
  Sender: FDA-Public Use
  Company Number: US-ROCHE-1064677

PATIENT
  Age: 61 Year
  Sex: Female

DRUGS (2)
  1. BONIVA [Suspect]
     Active Substance: IBANDRONATE SODIUM
     Indication: PRODUCT USED FOR UNKNOWN INDICATION
     Route: 065
  2. PREDNISONE. [Concomitant]
     Active Substance: PREDNISONE
     Route: 065

REACTIONS (11)
  - Hypoaesthesia [Unknown]
  - Nerve injury [Unknown]
  - Paraesthesia [Unknown]
  - Muscular weakness [Unknown]
  - Arthralgia [Unknown]
  - Intervertebral disc degeneration [Unknown]
  - Therapeutic response decreased [Unknown]
  - Bone pain [Unknown]
  - Groin pain [Unknown]
  - Pelvic pain [Unknown]
  - Pain in extremity [Unknown]
